FAERS Safety Report 6758085-3 (Version None)
Quarter: 2010Q2

REPORT INFORMATION
  Report Type: 
  Country: None (occurrence: None)
  Receive Date: 20100602
  Receipt Date: 20100526
  Transmission Date: 20101027
  Serious: Yes (Other)
  Sender: FDA-Public Use
  Company Number: 20108832

PATIENT
  Sex: Female

DRUGS (1)
  1. LIORESAL [Suspect]
     Indication: MUSCLE SPASTICITY
     Dosage: MCG, DAILY, INTRATHECAL
     Route: 037

REACTIONS (6)
  - MEDICAL DEVICE COMPLICATION [None]
  - MOOD SWINGS [None]
  - MUSCLE SPASTICITY [None]
  - MUSCLE TWITCHING [None]
  - PRURITUS [None]
  - THERAPY CESSATION [None]
